FAERS Safety Report 17200669 (Version 1)
Quarter: 2019Q4

REPORT INFORMATION
  Report Type: Spontaneous
  Country: GB (occurrence: GB)
  Receive Date: 20191226
  Receipt Date: 20191226
  Transmission Date: 20200122
  Serious: Yes (Other)
  Sender: FDA-Public Use
  Company Number: GB-ACCORD-166817

PATIENT
  Age: 75 Year
  Sex: Male
  Weight: 65 kg

DRUGS (12)
  1. SALBUTAMOL [Concomitant]
     Active Substance: ALBUTEROL
     Dosage: USE UP TO FOUR TIMES DAILY.
     Dates: start: 20190618
  2. ATROVENT [Concomitant]
     Active Substance: IPRATROPIUM BROMIDE
     Dosage: USE AS DIRECTED
     Dates: start: 20191101
  3. CARBOCISTEINE/CARBOCISTEINE LYSINE/CARBOCISTEINE SODIUM [Concomitant]
     Active Substance: CARBOCYSTEINE
     Dates: start: 20190715
  4. PREDNISOLONE. [Concomitant]
     Active Substance: PREDNISOLONE
     Dosage: FOR 5 DAYS.
     Dates: start: 20180926
  5. ALENDRONATE SODIUM/ALENDRONIC ACID [Concomitant]
     Active Substance: ALENDRONATE SODIUM
     Dosage: ON A TUESDAY.
     Dates: start: 20190508
  6. ATORVASTATIN/ATORVASTATIN CALCIUM [Suspect]
     Active Substance: ATORVASTATIN CALCIUM
     Indication: PRODUCT USED FOR UNKNOWN INDICATION
     Dates: start: 20191016
  7. DOXYCYCLINE. [Concomitant]
     Active Substance: DOXYCYCLINE
     Dosage: TWO NOW THEN ONE DAILY FOR INFECTIVE EXACERBATIONS
     Dates: start: 20180926
  8. SYMBICORT [Concomitant]
     Active Substance: BUDESONIDE\FORMOTEROL FUMARATE DIHYDRATE
     Dosage: PUFF
     Dates: start: 20190813
  9. RAMIPRIL. [Concomitant]
     Active Substance: RAMIPRIL
     Dosage: IN MORNING
     Dates: start: 20180926
  10. ADCAL [Concomitant]
     Dates: start: 20190827
  11. IPRATROPIUM [Concomitant]
     Active Substance: IPRATROPIUM
     Dates: start: 20191007, end: 20191027
  12. VENTOLIN [Concomitant]
     Active Substance: ALBUTEROL SULFATE
     Dosage: PUFF
     Dates: start: 20190618

REACTIONS (1)
  - Mouth swelling [Recovered/Resolved]

NARRATIVE: CASE EVENT DATE: 20191129
